FAERS Safety Report 5089405-6 (Version None)
Quarter: 2006Q3

REPORT INFORMATION
  Report Type: 
  Country: None (occurrence: None)
  Receive Date: 20060822
  Receipt Date: 20060802
  Transmission Date: 20061208
  Serious: Yes (Other)
  Sender: FDA-Public Use
  Company Number: US200608000482

PATIENT
  Sex: Female

DRUGS (2)
  1. FORTEO [Suspect]
     Indication: OSTEOPOROSIS
     Dates: start: 20050201
  2. FORTEO [Concomitant]

REACTIONS (6)
  - BLINDNESS UNILATERAL [None]
  - FALL [None]
  - OPTIC NERVE INFARCTION [None]
  - OPTIC NERVE INJURY [None]
  - OPTIC NEURITIS [None]
  - PAPILLOEDEMA [None]
